FAERS Safety Report 20659026 (Version 1)
Quarter: 2022Q1

REPORT INFORMATION
  Report Type: Spontaneous
  Country: FR (occurrence: FR)
  Receive Date: 20220331
  Receipt Date: 20220331
  Transmission Date: 20220424
  Serious: No
  Sender: FDA-Public Use
  Company Number: FR-PFIZER INC-202200473696

PATIENT
  Age: 67 Year
  Sex: Female
  Weight: 60 kg

DRUGS (1)
  1. PAXLOVID [Suspect]
     Active Substance: NIRMATRELVIR\RITONAVIR
     Indication: COVID-19 treatment
     Dosage: (2 DF OF PF-07321332 + 1 DF OF RITONAVIR), 2X/DAY
     Route: 048
     Dates: start: 20220225

REACTIONS (1)
  - Incorrect product administration duration [Unknown]
